FAERS Safety Report 5641231-2 (Version None)
Quarter: 2008Q1

REPORT INFORMATION
  Report Type: 
  Country: None (occurrence: None)
  Receive Date: 20080227
  Receipt Date: 20070330
  Transmission Date: 20080703
  Serious: No
  Sender: FDA-Public Use
  Company Number: A0645175A

PATIENT
  Age: 42 Year
  Sex: Female

DRUGS (2)
  1. NICOTINE [Suspect]
     Dates: start: 20070326, end: 20070326
  2. NICORETTE [Suspect]

REACTIONS (3)
  - JAW DISORDER [None]
  - RETCHING [None]
  - SPEECH DISORDER [None]
